FAERS Safety Report 8436512-3 (Version None)
Quarter: 2012Q2

REPORT INFORMATION
  Report Type: 
  Country: None (occurrence: None)
  Receive Date: 20120614
  Receipt Date: 20120524
  Transmission Date: 20120825
  Serious: Yes (Other)
  Sender: FDA-Public Use
  Company Number: FR-GLAXOSMITHKLINE-A0980994A

PATIENT
  Sex: Male

DRUGS (7)
  1. CARMUSTINE [Suspect]
     Indication: CHEMOTHERAPY
     Dosage: 510MG PER DAY
     Route: 042
     Dates: start: 20110608, end: 20110608
  2. CEFTRIAXONE [Concomitant]
     Dates: end: 20110620
  3. MABTHERA [Concomitant]
     Indication: CHEMOTHERAPY
     Dosage: 375MGM2 PER DAY
     Route: 065
     Dates: start: 20110608
  4. MELPHALAN HYDROCHLORIDE [Suspect]
     Indication: CHEMOTHERAPY
     Dosage: 240MG PER DAY
     Route: 042
     Dates: start: 20110613, end: 20110613
  5. ETOPOSIDE [Suspect]
     Indication: CHEMOTHERAPY
     Dosage: 680MG PER DAY
     Route: 042
     Dates: start: 20110609, end: 20110609
  6. CYTARABINE [Suspect]
     Indication: CHEMOTHERAPY
     Dosage: 680MG PER DAY
     Route: 042
     Dates: start: 20110609, end: 20110612
  7. TARGOCID [Concomitant]

REACTIONS (9)
  - ACUTE PULMONARY OEDEMA [None]
  - CARDIAC FAILURE [None]
  - INTERSTITIAL LUNG DISEASE [None]
  - DYSPNOEA [None]
  - RESPIRATORY DISORDER [None]
  - CREPITATIONS [None]
  - OXYGEN SATURATION DECREASED [None]
  - GENERAL PHYSICAL HEALTH DETERIORATION [None]
  - EJECTION FRACTION DECREASED [None]
